FAERS Safety Report 12924443 (Version 3)
Quarter: 2016Q4

REPORT INFORMATION
  Report Type: Spontaneous
  Country: BR (occurrence: BR)
  Receive Date: 20161109
  Receipt Date: 20161217
  Transmission Date: 20170207
  Serious: Yes (Other)
  Sender: FDA-Public Use
  Company Number: BR-ASTRAZENECA-2016SF16409

PATIENT
  Age: 663 Month
  Sex: Female

DRUGS (3)
  1. CRESTOR [Suspect]
     Active Substance: ROSUVASTATIN CALCIUM
     Indication: BLOOD CHOLESTEROL INCREASED
     Dosage: 20.0MG UNKNOWN
     Route: 048
     Dates: start: 201611
  2. RENITEC [Concomitant]
     Active Substance: ENALAPRIL MALEATE
     Indication: HYPERTENSION
     Dosage: TWO TIMES A DAY
     Dates: start: 1994
  3. CRESTOR [Suspect]
     Active Substance: ROSUVASTATIN CALCIUM
     Indication: BLOOD CHOLESTEROL INCREASED
     Dosage: 10.0MG UNKNOWN
     Route: 048
     Dates: start: 20060619, end: 201611

REACTIONS (10)
  - Spinal pain [Recovered/Resolved]
  - Bone pain [Recovered/Resolved]
  - Pain in extremity [Recovered/Resolved]
  - Dysgeusia [Not Recovered/Not Resolved]
  - Uterine cancer [Recovered/Resolved]
  - Confusional state [Recovered/Resolved]
  - Urinary tract infection [Recovered/Resolved]
  - Haemorrhage [Recovered/Resolved]
  - Gastrooesophageal reflux disease [Unknown]
  - Ear pain [Recovered/Resolved]

NARRATIVE: CASE EVENT DATE: 201310
